FAERS Safety Report 9020411 (Version 1)
Quarter: 2013Q1

REPORT INFORMATION
  Report Type: Spontaneous
  Country: US (occurrence: US)
  Receive Date: 20130119
  Receipt Date: 20130119
  Transmission Date: 20140127
  Serious: No
  Sender: FDA-Public Use
  Company Number: US-ALLERGAN-1208829US

PATIENT
  Age: 79 Year
  Sex: Male

DRUGS (1)
  1. BOTOX COSMETIC [Suspect]
     Indication: OFF LABEL USE
     Dosage: 1/10CC
     Route: 030
     Dates: start: 20120622, end: 20120622

REACTIONS (2)
  - Wrong technique in drug usage process [Unknown]
  - Injection site pain [Recovered/Resolved]
